FAERS Safety Report 15622497 (Version 1)
Quarter: 2018Q4

REPORT INFORMATION
  Report Type: Spontaneous
  Country: US (occurrence: US)
  Receive Date: 20181115
  Receipt Date: 20181115
  Transmission Date: 20190205
  Serious: No
  Sender: FDA-Public Use
  Company Number: US-BAYER-2018-212514

PATIENT
  Age: 66 Year
  Sex: Male
  Weight: 54.42 kg

DRUGS (3)
  1. MIRALAX [Suspect]
     Active Substance: POLYETHYLENE GLYCOL 3350
     Indication: GASTROINTESTINAL DISORDER
     Dosage: 1 DF, QOD
     Route: 048
     Dates: start: 201810
  2. IBRUTINIB [Concomitant]
     Active Substance: IBRUTINIB
     Dosage: UNK
  3. DULCOLAX (BISACODYL) [Concomitant]
     Active Substance: BISACODYL
     Dosage: UNK

REACTIONS (3)
  - Gastrointestinal motility disorder [None]
  - Abnormal faeces [Recovered/Resolved]
  - Anal incontinence [Recovered/Resolved]
